FAERS Safety Report 10200925 (Version 1)
Quarter: 2014Q2

REPORT INFORMATION
  Report Type: Report from Study
  Country: GB (occurrence: GB)
  Receive Date: 20140528
  Receipt Date: 20140528
  Transmission Date: 20141212
  Serious: Yes (Hospitalization)
  Sender: FDA-Public Use
  Company Number: GB-JNJFOC-20140510435

PATIENT
  Age: 67 Year
  Sex: Female
  Weight: 78.7 kg

DRUGS (6)
  1. USTEKINUMAB [Suspect]
     Indication: PSORIASIS
     Route: 058
     Dates: start: 20120801
  2. VITAMIN D [Concomitant]
     Route: 065
     Dates: start: 20130615
  3. TESTOSTERONE [Concomitant]
     Route: 065
     Dates: start: 20130515
  4. ACAMPROSATE [Concomitant]
     Route: 065
     Dates: start: 20130515
  5. AMLODIPINE [Concomitant]
     Route: 065
     Dates: start: 20050215, end: 20140215
  6. WARFARIN [Concomitant]
     Route: 065
     Dates: start: 20131115, end: 20131215

REACTIONS (4)
  - Fall [Not Recovered/Not Resolved]
  - Loss of consciousness [Unknown]
  - Blindness unilateral [Unknown]
  - Orthostatic hypertension [Unknown]
